FAERS Safety Report 4415241-7 (Version None)
Quarter: 2004Q3

REPORT INFORMATION
  Report Type: 
  Country: None (occurrence: None)
  Receive Date: 20040804
  Receipt Date: 20040624
  Transmission Date: 20050211
  Serious: Yes (Other)
  Sender: FDA-Public Use
  Company Number: SE-GLAXOSMITHKLINE-B0341246A

PATIENT
  Age: 21 Year
  Sex: Female

DRUGS (1)
  1. SEROXAT [Suspect]
     Indication: DEPRESSION
     Dosage: 40MG PER DAY
     Route: 048
     Dates: start: 20020201, end: 20030201

REACTIONS (4)
  - AFFECT LABILITY [None]
  - AGGRESSION [None]
  - INTENTIONAL SELF-INJURY [None]
  - NIGHTMARE [None]
